FAERS Safety Report 5066891-9 (Version None)
Quarter: 2006Q3

REPORT INFORMATION
  Report Type: 
  Country: None (occurrence: None)
  Receive Date: 20060728
  Receipt Date: 20060720
  Transmission Date: 20061208
  Serious: Yes (Hospitalization)
  Sender: FDA-Public Use
  Company Number: S06-USA-02838-01

PATIENT
  Age: 24 Year
  Sex: Female

DRUGS (5)
  1. LEXAPRO [Suspect]
     Indication: BIPOLAR DISORDER
     Dosage: 20 MG QD PO
     Route: 048
     Dates: start: 20011001, end: 20060601
  2. LEXAPRO [Suspect]
     Indication: BIPOLAR DISORDER
     Dates: start: 20060101, end: 20060101
  3. DEPAKOTE ER [Suspect]
     Indication: BIPOLAR DISORDER
  4. DEPAKOTE ER [Suspect]
     Indication: BIPOLAR DISORDER
     Dates: start: 20060101, end: 20060101
  5. RISPERDAL [Suspect]
     Indication: BIPOLAR DISORDER
     Dosage: 2 MG QD
     Dates: start: 20020101, end: 20060501

REACTIONS (8)
  - BENIGN BREAST NEOPLASM [None]
  - BREAST CYST [None]
  - BREAST DISCHARGE [None]
  - INTENTIONAL OVERDOSE [None]
  - INTENTIONAL SELF-INJURY [None]
  - SELF-INJURIOUS IDEATION [None]
  - SUICIDAL IDEATION [None]
  - SUICIDE ATTEMPT [None]
